FAERS Safety Report 4920307-9 (Version None)
Quarter: 2006Q1

REPORT INFORMATION
  Report Type: 
  Country: None (occurrence: None)
  Receive Date: 20060223
  Receipt Date: 20060131
  Transmission Date: 20060701
  Serious: Yes (Other)
  Sender: FDA-Public Use
  Company Number: GB-ABBOTT-06P-167-0324244-00

PATIENT
  Sex: Female

DRUGS (3)
  1. KLARICID XL [Suspect]
     Indication: INFLAMMATION
     Route: 048
     Dates: start: 20060124, end: 20060128
  2. METRONIDAZOLE [Concomitant]
     Indication: INFLAMMATION
     Route: 048
     Dates: start: 20060124, end: 20060131
  3. PAROXETINE HYDROCHLORIDE [Concomitant]
     Indication: ANXIETY
     Route: 048
     Dates: start: 20011116

REACTIONS (5)
  - MOUTH ULCERATION [None]
  - ORAL DISCOMFORT [None]
  - ORAL MUCOSAL BLISTERING [None]
  - PAIN [None]
  - SWELLING FACE [None]
